FAERS Safety Report 8455993-2 (Version None)
Quarter: 2012Q2

REPORT INFORMATION
  Report Type: 
  Country: None (occurrence: None)
  Receive Date: 20120621
  Receipt Date: 20120612
  Transmission Date: 20120825
  Serious: Yes (Other)
  Sender: FDA-Public Use
  Company Number: PHHY2012JP052317

PATIENT
  Sex: Male
  Weight: 130 kg

DRUGS (2)
  1. DIOVAN [Suspect]
     Dosage: 80 MG, DAILY
     Route: 048
  2. BISOPROLOL FUMARATE [Concomitant]
     Dosage: 5 MG, DAILY
     Route: 048

REACTIONS (3)
  - BLOOD PRESSURE INCREASED [None]
  - ASTHMA [None]
  - HEART RATE INCREASED [None]
